FAERS Safety Report 9308541 (Version 1)
Quarter: 2013Q2

REPORT INFORMATION
  Report Type: Spontaneous
  Country: CN (occurrence: CN)
  Receive Date: 20130524
  Receipt Date: 20130524
  Transmission Date: 20140414
  Serious: Yes (Other)
  Sender: FDA-Public Use
  Company Number: CN-JNJFOC-20130512079

PATIENT
  Age: 18 Year
  Sex: Male

DRUGS (1)
  1. ULTRACET [Suspect]
     Indication: PAIN
     Dosage: 3 TIMES A DAY
     Route: 048
     Dates: start: 20120518, end: 20120518

REACTIONS (9)
  - Chest discomfort [Recovered/Resolved]
  - Hypotension [Recovered/Resolved]
  - Heart rate increased [Recovered/Resolved]
  - Nausea [Recovered/Resolved]
  - Vomiting [Recovered/Resolved]
  - Hyperhidrosis [Recovered/Resolved]
  - Dizziness [Recovered/Resolved]
  - Pruritus generalised [Recovered/Resolved]
  - Rash [Recovered/Resolved]
